FAERS Safety Report 25118722 (Version 1)
Quarter: 2025Q1

REPORT INFORMATION
  Report Type: Spontaneous
  Country: US (occurrence: US)
  Receive Date: 20250325
  Receipt Date: 20250325
  Transmission Date: 20250408
  Serious: Yes (Hospitalization)
  Sender: IRON THERAPEUTICS
  Company Number: US-SHIELD THERAPEUTICS-US-STX-25-00106

PATIENT
  Age: 89 Year
  Sex: Female

DRUGS (1)
  1. ACCRUFER [Suspect]
     Active Substance: FERRIC MALTOL
     Indication: Product used for unknown indication
     Dosage: 30 MILLIGRAM, BID, 1 CAPSULE IN THE MORNING AND BEFORE BEDTIME
     Route: 048

REACTIONS (1)
  - Hospitalisation [Unknown]
